FAERS Safety Report 22089749 (Version 3)
Quarter: 2023Q2

REPORT INFORMATION
  Report Type: Report from Study
  Country: JP (occurrence: JP)
  Receive Date: 20230313
  Receipt Date: 20230525
  Transmission Date: 20230722
  Serious: Yes (Death)
  Sender: FDA-Public Use
  Company Number: JP-SERVIER-S23000610

PATIENT
  Age: 79 Year
  Sex: Female
  Weight: 43.9 kg

DRUGS (26)
  1. ONIVYDE [Suspect]
     Active Substance: IRINOTECAN HYDROCHLORIDE
     Indication: Pancreatic carcinoma
     Dosage: 57 MG/M2
     Route: 065
     Dates: start: 20210908, end: 20210908
  2. ONIVYDE [Suspect]
     Active Substance: IRINOTECAN HYDROCHLORIDE
     Dosage: 56 MG/M2
     Route: 065
     Dates: start: 20210924, end: 20210924
  3. ONIVYDE [Suspect]
     Active Substance: IRINOTECAN HYDROCHLORIDE
     Dosage: 57 MG/M2
     Route: 065
     Dates: start: 20211012, end: 20211012
  4. ONIVYDE [Suspect]
     Active Substance: IRINOTECAN HYDROCHLORIDE
     Dosage: 57 MG/M2
     Route: 065
     Dates: start: 20211102, end: 20211102
  5. ONIVYDE [Suspect]
     Active Substance: IRINOTECAN HYDROCHLORIDE
     Dosage: 57 MG/M2
     Route: 065
     Dates: start: 20211115, end: 20211115
  6. ONIVYDE [Suspect]
     Active Substance: IRINOTECAN HYDROCHLORIDE
     Dosage: 57 MG/M2
     Route: 065
     Dates: start: 20211129, end: 20211129
  7. ONIVYDE [Suspect]
     Active Substance: IRINOTECAN HYDROCHLORIDE
     Dosage: 57 MG/M2
     Route: 065
     Dates: start: 20211213, end: 20211213
  8. ONIVYDE [Suspect]
     Active Substance: IRINOTECAN HYDROCHLORIDE
     Dosage: 57 MG/M2
     Route: 065
     Dates: start: 20220104, end: 20220104
  9. LEVOLEUCOVORIN CALCIUM [Concomitant]
     Active Substance: LEVOLEUCOVORIN CALCIUM
     Indication: Pancreatic carcinoma
     Dosage: 200 MG/M2
     Dates: start: 20210908, end: 20210908
  10. LEVOLEUCOVORIN CALCIUM [Concomitant]
     Active Substance: LEVOLEUCOVORIN CALCIUM
     Dosage: 198 MG/M2
     Dates: start: 20210924, end: 20210924
  11. LEVOLEUCOVORIN CALCIUM [Concomitant]
     Active Substance: LEVOLEUCOVORIN CALCIUM
     Dosage: 201 MG/M2
     Dates: start: 20211012, end: 20211012
  12. LEVOLEUCOVORIN CALCIUM [Concomitant]
     Active Substance: LEVOLEUCOVORIN CALCIUM
     Dosage: 197 MG/M2
     Dates: start: 20211102, end: 20211102
  13. LEVOLEUCOVORIN CALCIUM [Concomitant]
     Active Substance: LEVOLEUCOVORIN CALCIUM
     Dosage: 197 MG/M2
     Dates: start: 20211115, end: 20211115
  14. LEVOLEUCOVORIN CALCIUM [Concomitant]
     Active Substance: LEVOLEUCOVORIN CALCIUM
     Dosage: 199 MG/M2
     Dates: start: 20211129, end: 20211129
  15. LEVOLEUCOVORIN CALCIUM [Concomitant]
     Active Substance: LEVOLEUCOVORIN CALCIUM
     Dosage: 199 MG/M2
     Dates: start: 20211213, end: 20211213
  16. LEVOLEUCOVORIN CALCIUM [Concomitant]
     Active Substance: LEVOLEUCOVORIN CALCIUM
     Dosage: 199 MG/M2
     Dates: start: 20220104, end: 20220104
  17. FLUOROURACIL [Concomitant]
     Active Substance: FLUOROURACIL
     Indication: Pancreatic carcinoma
     Dosage: 1950 MG/M2
     Dates: start: 20210908, end: 20210910
  18. FLUOROURACIL [Concomitant]
     Active Substance: FLUOROURACIL
     Dosage: 1914 MG/M2
     Dates: start: 20210924, end: 20210926
  19. FLUOROURACIL [Concomitant]
     Active Substance: FLUOROURACIL
     Dosage: 1942 MG/M2
     Dates: start: 20211012, end: 20211014
  20. FLUOROURACIL [Concomitant]
     Active Substance: FLUOROURACIL
     Dosage: 1942 MG/M2
     Dates: start: 20211102, end: 20211104
  21. FLUOROURACIL [Concomitant]
     Active Substance: FLUOROURACIL
     Dosage: 1942 MG/M2
     Dates: start: 20211115, end: 20211117
  22. FLUOROURACIL [Concomitant]
     Active Substance: FLUOROURACIL
     Dosage: 1956 MG/M2
     Dates: start: 20211129, end: 20211201
  23. FLUOROURACIL [Concomitant]
     Active Substance: FLUOROURACIL
     Dosage: 1956 MG/M2
     Dates: start: 20211213, end: 20211215
  24. FLUOROURACIL [Concomitant]
     Active Substance: FLUOROURACIL
     Dosage: 1956 MG/M2
     Dates: start: 20220104, end: 20220106
  25. PALONOSETRON HYDROCHLORIDE [Concomitant]
     Active Substance: PALONOSETRON HYDROCHLORIDE
     Indication: Chemotherapy side effect prophylaxis
     Dosage: UNK
     Route: 065
  26. DEXAMETHASONE [Concomitant]
     Active Substance: DEXAMETHASONE
     Indication: Chemotherapy side effect prophylaxis
     Dosage: UNK
     Route: 065

REACTIONS (2)
  - Malignant neoplasm progression [Fatal]
  - Off label use [Unknown]

NARRATIVE: CASE EVENT DATE: 20210908
